FAERS Safety Report 6743845-5 (Version None)
Quarter: 2010Q2

REPORT INFORMATION
  Report Type: 
  Country: None (occurrence: None)
  Receive Date: 20100527
  Receipt Date: 20100218
  Transmission Date: 20101027
  Serious: No
  Sender: FDA-Public Use
  Company Number: US-KINGPHARMUSA00001-K201000181

PATIENT
  Age: 68 Year
  Sex: Female

DRUGS (5)
  1. FLECTOR [Suspect]
     Indication: PAIN IN EXTREMITY
     Dosage: 1 PATCH, SINGLE
     Route: 061
     Dates: start: 20100215, end: 20100215
  2. CALCIUM + VITAMIN D [Concomitant]
     Dosage: 600 MG, UNK
  3. FISH OIL [Concomitant]
     Dosage: 1000 MG, UNK
  4. LUTEINE [Concomitant]
     Dosage: 15 MG, UNK
  5. LEVOTHYROXINE SODIUM [Concomitant]
     Dosage: 25 MCG, UNK

REACTIONS (2)
  - APPLICATION SITE RASH [None]
  - SWOLLEN TONGUE [None]
